FAERS Safety Report 24340681 (Version 11)
Quarter: 2025Q4

REPORT INFORMATION
  Report Type: Spontaneous
  Country: EU (occurrence: EU)
  Receive Date: 20240919
  Receipt Date: 20251110
  Transmission Date: 20260117
  Serious: Yes (Hospitalization, Disabling, Other)
  Sender: GLAXOSMITHKLINE
  Company Number: EU-GLAXOSMITHKLINE-FR2024EME114399

PATIENT
  Age: 31 Year
  Sex: Female
  Weight: 50 kg

DRUGS (14)
  1. LAMICTAL [Suspect]
     Active Substance: LAMOTRIGINE
     Indication: Attention deficit hyperactivity disorder
     Dosage: 25 MG, QD, INCREASING EVERY FORTNIGHT
  2. LAMICTAL [Suspect]
     Active Substance: LAMOTRIGINE
     Dosage: 25 MG, Q2W
  3. LAMICTAL [Suspect]
     Active Substance: LAMOTRIGINE
     Dosage: 200 MG
  4. EBASTINE [Concomitant]
     Active Substance: EBASTINE
     Indication: Product used for unknown indication
     Dosage: UNK
  5. BETAMETHASONE [Concomitant]
     Active Substance: BETAMETHASONE
     Indication: Product used for unknown indication
     Dosage: UNK
  6. CELLCEPT [Concomitant]
     Active Substance: MYCOPHENOLATE MOFETIL
     Indication: Product used for unknown indication
     Dosage: 250 MG, BID
  7. SOLU-MEDROL [Concomitant]
     Active Substance: METHYLPREDNISOLONE SODIUM SUCCINATE
     Indication: Product used for unknown indication
     Dosage: UNK
  8. PROGRAF [Concomitant]
     Active Substance: TACROLIMUS
     Indication: Product used for unknown indication
     Dosage: 3 MG, BID
  9. PROGRAF [Concomitant]
     Active Substance: TACROLIMUS
     Dosage: UNK 3 IN MORNING 3 IN EVENING
  10. CERTICAN [Concomitant]
     Active Substance: EVEROLIMUS
     Indication: Product used for unknown indication
     Dosage: 0.5 MG, BID
  11. CERTICAN [Concomitant]
     Active Substance: EVEROLIMUS
     Dosage: 1.5 MG, QD
  12. KARDEGIC [Concomitant]
     Active Substance: ASPIRIN DL-LYSINE
     Indication: Product used for unknown indication
     Dosage: 75 MG, QD
  13. PRAVASTATIN [Concomitant]
     Active Substance: PRAVASTATIN
     Indication: Product used for unknown indication
     Dosage: 40 MG, QD
  14. CANNABIS SATIVA SUBSP. INDICA TOP [Concomitant]
     Active Substance: CANNABIS SATIVA SUBSP. INDICA TOP
     Indication: Product used for unknown indication
     Dosage: UNK

REACTIONS (99)
  - Drug reaction with eosinophilia and systemic symptoms [Unknown]
  - Hospitalisation [Unknown]
  - Hyperleukocytosis [Unknown]
  - Drug eruption [Unknown]
  - Folliculitis [Unknown]
  - Oropharyngeal erythema [Unknown]
  - Toxic skin eruption [Unknown]
  - Sternotomy [Unknown]
  - Myocarditis [Unknown]
  - Cardiac ventricular thrombosis [Unknown]
  - Pulmonary embolism [Unknown]
  - Cardiogenic shock [Unknown]
  - Cardiomyopathy [Not Recovered/Not Resolved]
  - Pneumonia [Unknown]
  - Myocardial infarction [Unknown]
  - Cardiac arrest [Unknown]
  - Respiratory failure [Unknown]
  - Pneumonia bacterial [Unknown]
  - Gait disturbance [Unknown]
  - Transplant rejection [Unknown]
  - Hypothyroidism [Unknown]
  - Drug-induced liver injury [Unknown]
  - Liver injury [Unknown]
  - Mediastinitis [Unknown]
  - Tracheostomy [Unknown]
  - Ischaemic stroke [Unknown]
  - Paralysis [Unknown]
  - Pneumothorax [Unknown]
  - Enterobacter pneumonia [Unknown]
  - Haematemesis [Unknown]
  - Transplant rejection [Unknown]
  - Chronic kidney disease [Unknown]
  - Renal impairment [Unknown]
  - Polyneuropathy [Unknown]
  - Neuromyopathy [Unknown]
  - Aortic valve incompetence [Unknown]
  - Thrombocytopenia [Unknown]
  - Coma [Unknown]
  - Human herpesvirus 6 infection [Unknown]
  - Epstein-Barr virus infection [Unknown]
  - Erythema [Unknown]
  - Oedema [Unknown]
  - Balance disorder [Not Recovered/Not Resolved]
  - Toxicity to various agents [Unknown]
  - Odynophagia [Unknown]
  - Vomiting [Recovered/Resolved]
  - Aggression [Unknown]
  - Venous thrombosis [Unknown]
  - Extremity necrosis [Recovering/Resolving]
  - Post-traumatic stress disorder [Unknown]
  - Mixed anxiety and depressive disorder [Unknown]
  - Memory impairment [Unknown]
  - General physical health deterioration [Unknown]
  - Vasculitis [Unknown]
  - Depressed mood [Recovering/Resolving]
  - Loss of personal independence in daily activities [Unknown]
  - Insomnia [Unknown]
  - Fatigue [Unknown]
  - Alopecia [Unknown]
  - Weight increased [Unknown]
  - Malnutrition [Unknown]
  - Loss of libido [Unknown]
  - Social anxiety disorder [Unknown]
  - Urticaria [Unknown]
  - Rash [Not Recovered/Not Resolved]
  - Rash pruritic [Unknown]
  - Hypokinesia [Unknown]
  - Aphonia [Unknown]
  - Decubitus ulcer [Recovered/Resolved]
  - Hepatic function abnormal [Recovering/Resolving]
  - Cervical cyst [Unknown]
  - Inguinal hernia [Unknown]
  - Mental disorder [Unknown]
  - Attention deficit hyperactivity disorder [Unknown]
  - Pain [Unknown]
  - Delusion [Unknown]
  - Emotional distress [Unknown]
  - Joint lock [Unknown]
  - Oedema peripheral [Unknown]
  - Derealisation [Unknown]
  - Stress [Unknown]
  - Agitation [Unknown]
  - Irritability [Unknown]
  - Vulvovaginal pain [Unknown]
  - Tachycardia [Unknown]
  - Decubitus ulcer [Unknown]
  - Cell death [Unknown]
  - Urinary tract infection [Unknown]
  - Nosocomial infection [Unknown]
  - Klebsiella infection [Unknown]
  - Enterobacter infection [Unknown]
  - Herpes simplex [Unknown]
  - Aphonia [Recovering/Resolving]
  - Dysphonia [Not Recovered/Not Resolved]
  - Obstructive airways disorder [Unknown]
  - Gastrointestinal disorder [Unknown]
  - Inappropriate schedule of product administration [Unknown]
  - Off label use [Unknown]
  - Extra dose administered [Unknown]

NARRATIVE: CASE EVENT DATE: 20230301
